FAERS Safety Report 4868070-4 (Version None)
Quarter: 2005Q4

REPORT INFORMATION
  Report Type: 
  Country: None (occurrence: None)
  Receive Date: 20051229
  Receipt Date: 20051216
  Transmission Date: 20060501
  Serious: Yes (Hospitalization)
  Sender: FDA-Public Use
  Company Number: DE-JNJFOC-20051101962

PATIENT
  Sex: Female
  Weight: 58 kg

DRUGS (1)
  1. ORTHO EVRA [Suspect]
     Indication: CONTRACEPTION
     Route: 062
     Dates: start: 20050301, end: 20051018

REACTIONS (5)
  - ANAEMIA [None]
  - COLLAGEN DISORDER [None]
  - HAEMATOMA [None]
  - LEUKOPENIA [None]
  - THROMBOCYTOPENIA [None]
